FAERS Safety Report 15189440 (Version 7)
Quarter: 2018Q4

REPORT INFORMATION
  Report Type: Report from Study
  Country: AT (occurrence: AT)
  Receive Date: 20180724
  Receipt Date: 20181011
  Transmission Date: 20190204
  Serious: Yes (Hospitalization)
  Sender: FDA-Public Use
  Company Number: AT-ROCHE-2155895

PATIENT
  Age: 42 Year
  Sex: Female
  Weight: 57 kg

DRUGS (37)
  1. PACLITAXEL. [Suspect]
     Active Substance: PACLITAXEL
     Indication: OVARIAN CANCER STAGE IV
  2. LOVENOX [Concomitant]
     Active Substance: ENOXAPARIN SODIUM
     Indication: THROMBOSIS PROPHYLAXIS
     Route: 065
     Dates: start: 20180226
  3. LOVENOX [Concomitant]
     Active Substance: ENOXAPARIN SODIUM
     Route: 065
     Dates: start: 20180723, end: 20180723
  4. URBASON [Concomitant]
     Active Substance: METHYLPREDNISOLONE
     Indication: HYPERSENSITIVITY
     Route: 065
     Dates: start: 20180625, end: 20180625
  5. CEOLAT [Concomitant]
     Indication: NAUSEA
     Route: 065
     Dates: start: 20180316, end: 20180714
  6. CEOLAT [Concomitant]
     Indication: VOMITING
  7. ESCITALOPRAM [Concomitant]
     Active Substance: ESCITALOPRAM OXALATE
     Indication: DEPRESSION
     Route: 065
     Dates: start: 20180416
  8. ZYRTEC [Concomitant]
     Active Substance: CETIRIZINE HYDROCHLORIDE
     Indication: HYPERSENSITIVITY
     Route: 065
     Dates: start: 20180625, end: 20180625
  9. DIBONDRIN [Concomitant]
     Active Substance: DIPHENHYDRAMINE HYDROCHLORIDE
     Route: 065
     Dates: start: 20180724, end: 20180724
  10. PANTOLOC [Concomitant]
     Active Substance: PANTOPRAZOLE SODIUM
     Indication: PROPHYLAXIS
     Route: 065
     Dates: start: 20180227, end: 20180915
  11. FORTECORTIN [Concomitant]
     Active Substance: DEXAMETHASONE
     Route: 042
     Dates: start: 20180724, end: 20180724
  12. SOLU-DACORTIN [Concomitant]
     Active Substance: PREDNISOLONE SODIUM SUCCINATE
     Indication: HYPERSENSITIVITY
     Route: 042
     Dates: start: 20180626, end: 20180626
  13. PACLITAXEL. [Suspect]
     Active Substance: PACLITAXEL
     Indication: OVARIAN CANCER
     Dosage: DATE OF MOST RECENT DOSE (284 MG) OF PACLITAXEL PRIOR TO SAE (FIRST EPISODE) WAS GIVEN ON 26/JUN/201
     Route: 042
     Dates: start: 20180315
  14. GRANISETRON [Concomitant]
     Active Substance: GRANISETRON
     Indication: VOMITING
     Route: 065
     Dates: start: 20180625, end: 20180701
  15. GRANISETRON [Concomitant]
     Active Substance: GRANISETRON
     Indication: NAUSEA
     Route: 065
     Dates: start: 20180723, end: 20180728
  16. ZOFRAN [Concomitant]
     Active Substance: ONDANSETRON HYDROCHLORIDE
     Indication: VOMITING
     Route: 065
     Dates: start: 20180626, end: 20180628
  17. ATEZOLIZUMAB. [Suspect]
     Active Substance: ATEZOLIZUMAB
     Indication: OVARIAN CANCER
     Dosage: DATE OF MOST RECENT DOSE OF BLINDED ATEZOLIZUMAB ADMINISTERED PRIOR TO SAE (FIRST EPISODE) WAS 26/JU
     Route: 042
     Dates: start: 20180315
  18. BEVACIZUMAB. [Suspect]
     Active Substance: BEVACIZUMAB
     Indication: OVARIAN CANCER
     Dosage: DATE OF MOST RECENT DOSE (844 MG ) OF BEVACIZUMAB ADMINISTERED PRIOR TO SAE (FIRST EPISODE) WAS 26/J
     Route: 042
     Dates: start: 20180405
  19. CARBOPLATIN. [Suspect]
     Active Substance: CARBOPLATIN
     Indication: OVARIAN CANCER STAGE IV
  20. ZOFRAN [Concomitant]
     Active Substance: ONDANSETRON HYDROCHLORIDE
     Indication: NAUSEA
     Route: 065
     Dates: start: 20180724, end: 20180724
  21. CARBOPLATIN. [Suspect]
     Active Substance: CARBOPLATIN
     Indication: OVARIAN CANCER
     Dosage: DATE OF MOST RECENT DOSE (870 MG ) OF CARBOPLATIN PRIOR TO SAE (FIRST EPISODE) WAS 26/JUN/2018.?DATE
     Route: 042
     Dates: start: 20180315
  22. EUTHYROX [Concomitant]
     Active Substance: LEVOTHYROXINE SODIUM
     Indication: HYPOTHYROIDISM
     Route: 065
     Dates: start: 20180301
  23. MOLAXOLE [Concomitant]
     Active Substance: POLYETHYLENE GLYCOL 3350\POTASSIUM CHLORIDE\SODIUM BICARBONATE\SODIUM CHLORIDE
     Indication: CONSTIPATION
     Route: 065
     Dates: start: 20180427, end: 20180913
  24. EMEND [Concomitant]
     Active Substance: APREPITANT
     Indication: VOMITING
     Route: 065
     Dates: start: 20180626, end: 20180628
  25. EMEND [Concomitant]
     Active Substance: APREPITANT
     Indication: NAUSEA
     Route: 065
     Dates: start: 20180724
  26. SOLU-DACORTIN [Concomitant]
     Active Substance: PREDNISOLONE SODIUM SUCCINATE
     Route: 042
     Dates: start: 20180724, end: 20180724
  27. BEVACIZUMAB. [Suspect]
     Active Substance: BEVACIZUMAB
     Indication: OVARIAN CANCER STAGE IV
  28. TEMESTA (AUSTRIA) [Concomitant]
     Indication: INSOMNIA
     Route: 065
     Dates: start: 20180226, end: 20180724
  29. FORTECORTIN [Concomitant]
     Active Substance: DEXAMETHASONE
     Indication: HYPERSENSITIVITY
     Route: 042
     Dates: start: 20180626, end: 20180626
  30. DIBONDRIN [Concomitant]
     Active Substance: DIPHENHYDRAMINE HYDROCHLORIDE
     Indication: HYPERSENSITIVITY
     Route: 065
     Dates: start: 20180626, end: 20180626
  31. ANTIFLAT [Concomitant]
     Indication: FLATULENCE
     Route: 065
     Dates: start: 20180228
  32. MAGNOSOLV [Concomitant]
     Indication: CONSTIPATION
     Route: 065
     Dates: start: 20180305, end: 20180914
  33. MEXALEN [Concomitant]
     Active Substance: ACETAMINOPHEN
     Indication: PAIN
     Route: 065
     Dates: start: 20180316
  34. ZYRTEC [Concomitant]
     Active Substance: CETIRIZINE HYDROCHLORIDE
     Route: 065
     Dates: start: 20180723, end: 20180723
  35. ZANTAC [Concomitant]
     Active Substance: RANITIDINE HYDROCHLORIDE
     Route: 065
     Dates: start: 20180625, end: 20180625
  36. ZANTAC [Concomitant]
     Active Substance: RANITIDINE HYDROCHLORIDE
     Route: 065
     Dates: start: 20180723, end: 20180724
  37. URBASON [Concomitant]
     Active Substance: METHYLPREDNISOLONE
     Route: 048
     Dates: start: 20180723, end: 20180723

REACTIONS (1)
  - Platelet count decreased [Recovered/Resolved]

NARRATIVE: CASE EVENT DATE: 20180713
